FAERS Safety Report 18781192 (Version 1)
Quarter: 2021Q1

REPORT INFORMATION
  Report Type: Spontaneous
  Country: US (occurrence: US)
  Receive Date: 20210122
  Receipt Date: 20210122
  Transmission Date: 20210419
  Serious: Yes (Hospitalization)
  Sender: FDA-Public Use
  Company Number: None

PATIENT
  Age: 72 Year
  Sex: Male
  Weight: 75.6 kg

DRUGS (1)
  1. TECARTUS [Suspect]
     Active Substance: BREXUCABTAGENE AUTOLEUCEL

REACTIONS (9)
  - Blood creatine increased [None]
  - Fatigue [None]
  - Serum ferritin increased [None]
  - Pyrexia [None]
  - Neurotoxicity [None]
  - Nausea [None]
  - Somnolence [None]
  - Disorientation [None]
  - Headache [None]

NARRATIVE: CASE EVENT DATE: 20201210
